FAERS Safety Report 9229951 (Version 2)
Quarter: 2013Q2

REPORT INFORMATION
  Report Type: Spontaneous
  Country: CA (occurrence: CA)
  Receive Date: 20130415
  Receipt Date: 20130506
  Transmission Date: 20140414
  Serious: Yes (Other)
  Sender: FDA-Public Use
  Company Number: CA-BAYER-2013-044304

PATIENT
  Age: 44 Year
  Sex: Female

DRUGS (2)
  1. MIRENA [Suspect]
     Indication: MENORRHAGIA
     Dosage: 20 MCG/24HR, CONT
     Route: 015
     Dates: start: 201304
  2. MIRENA [Suspect]
     Indication: MIGRAINE

REACTIONS (11)
  - Back pain [None]
  - Genital haemorrhage [None]
  - Conjunctivitis infective [Recovered/Resolved]
  - Erythema of eyelid [Recovered/Resolved]
  - Dry eye [Recovered/Resolved]
  - Genital haemorrhage [None]
  - Abdominal distension [None]
  - Affect lability [None]
  - Irritable bowel syndrome [None]
  - Urinary retention [None]
  - Dysuria [None]
